FAERS Safety Report 7146428-0 (Version None)
Quarter: 2010Q4

REPORT INFORMATION
  Report Type: 
  Country: None (occurrence: None)
  Receive Date: 20101208
  Receipt Date: 20100902
  Transmission Date: 20110411
  Serious: No
  Sender: FDA-Public Use
  Company Number: US-BRISTOL-MYERS SQUIBB COMPANY-15270457

PATIENT
  Age: 70 Year
  Sex: Female
  Weight: 66 kg

DRUGS (7)
  1. PRAVASTATIN SODIUM [Suspect]
     Indication: BLOOD CHOLESTEROL INCREASED
     Route: 065
     Dates: start: 20090101, end: 20100701
  2. NIASPAN [Suspect]
     Indication: BLOOD CHOLESTEROL INCREASED
     Dosage: INITIAL DOSE 500MG ON APROX JUL2009- APROXJAN2010; 1000 MG FROM JAN-2010-ONGOING
     Route: 048
     Dates: start: 20090701
  3. VIGRAN [Concomitant]
  4. FISH OIL [Concomitant]
  5. ERGOCALCIFEROL [Concomitant]
  6. ASCORBIC ACID [Concomitant]
  7. CALCIUM-SANDOZ [Concomitant]

REACTIONS (3)
  - MUSCLE SPASMS [None]
  - MYALGIA [None]
  - PAIN IN EXTREMITY [None]
